FAERS Safety Report 19926670 (Version 3)
Quarter: 2021Q4

REPORT INFORMATION
  Report Type: Report from Study
  Country: AR (occurrence: AR)
  Receive Date: 20211006
  Receipt Date: 20211101
  Transmission Date: 20220303
  Serious: Yes (Hospitalization, Other)
  Sender: FDA-Public Use
  Company Number: AR-BRISTOL-MYERS SQUIBB COMPANY-BMS-2021-099741

PATIENT
  Age: 51 Year
  Sex: Male
  Weight: 86 kg

DRUGS (13)
  1. NIVOLUMAB [Suspect]
     Active Substance: NIVOLUMAB
     Indication: Colorectal cancer metastatic
     Dosage: 240 MILLIGRAM
     Route: 042
     Dates: start: 20210924
  2. IPILIMUMAB [Suspect]
     Active Substance: IPILIMUMAB
     Indication: Colorectal cancer metastatic
     Dosage: 70 MILLIGRAM
     Route: 042
     Dates: start: 20210924, end: 20210924
  3. OXALIPLATIN [Suspect]
     Active Substance: OXALIPLATIN
     Indication: Colorectal cancer metastatic
     Dosage: 170 MILLIGRAM
     Route: 042
     Dates: start: 20200402
  4. LEUCOVORIN [Suspect]
     Active Substance: LEUCOVORIN
     Indication: Colorectal cancer metastatic
     Dosage: 400 MILLIGRAM
     Route: 042
     Dates: start: 20200402
  5. FLUOROURACIL [Suspect]
     Active Substance: FLUOROURACIL
     Indication: Colorectal cancer metastatic
     Dosage: 800 MILLIGRAM
     Route: 040
     Dates: start: 20200402
  6. BEVACIZUMAB [Suspect]
     Active Substance: BEVACIZUMAB
     Indication: Colorectal cancer metastatic
     Dosage: 430 MILLIGRAM
     Route: 042
     Dates: start: 20200402
  7. METFORMIN HYDROCHLORIDE [Concomitant]
     Active Substance: METFORMIN HYDROCHLORIDE
     Indication: Product used for unknown indication
     Dosage: 1700 MILLIGRAM
     Route: 048
     Dates: start: 2015
  8. INSULINA [INSULIN] [Concomitant]
     Indication: Product used for unknown indication
     Dosage: 1 DOSAGE FORM =18 UNIT NOS
     Route: 050
     Dates: start: 20201216
  9. ALLOPURINOL [Concomitant]
     Active Substance: ALLOPURINOL
     Indication: Product used for unknown indication
     Dosage: 100 MILLIGRAM
     Route: 048
     Dates: start: 20210817
  10. CALCIUM POLYSTYRENE SULFONATE [Concomitant]
     Active Substance: CALCIUM POLYSTYRENE SULFONATE
     Indication: Product used for unknown indication
     Dosage: 10 GRAM
     Route: 048
     Dates: start: 20210817
  11. FLUDROCORTISONE [Concomitant]
     Active Substance: FLUDROCORTISONE
     Indication: Product used for unknown indication
     Dosage: 0.1 MILLIGRAM
     Route: 048
     Dates: start: 20210823
  12. GLICLAZIDE [Concomitant]
     Active Substance: GLICLAZIDE
     Indication: Prophylaxis
     Dosage: 1 DOSAGE FORM =2 UNIT NS
     Route: 048
     Dates: start: 20200601
  13. DAPAGLIFLOZIN [Concomitant]
     Active Substance: DAPAGLIFLOZIN
     Indication: Product used for unknown indication
     Dosage: 1 DOSAGE FORM=1 UNIT NOS
     Route: 048
     Dates: start: 20200603

REACTIONS (2)
  - Urinary tract obstruction [Recovered/Resolved]
  - Pyrexia [Recovered/Resolved]

NARRATIVE: CASE EVENT DATE: 20210925
